FAERS Safety Report 7262275-3 (Version None)
Quarter: 2011Q1

REPORT INFORMATION
  Report Type: 
  Country: None (occurrence: None)
  Receive Date: 20110130
  Receipt Date: 20101207
  Transmission Date: 20110831
  Serious: No
  Sender: FDA-Public Use
  Company Number: US-ABBOTT-10P-163-0685562-00

PATIENT
  Age: 62 Year
  Sex: Female

DRUGS (6)
  1. EFFEXOR [Concomitant]
     Indication: PANIC DISORDER
  2. EFFEXOR [Concomitant]
     Indication: DEPRESSION
     Route: 048
  3. VICODIN [Concomitant]
     Indication: MUSCULOSKELETAL PAIN
     Dosage: 10/325
     Route: 048
  4. VALIUM [Concomitant]
     Indication: ANXIETY
     Route: 048
  5. HUMIRA [Suspect]
     Indication: CROHN'S DISEASE
     Dates: start: 20100921
  6. EFFEXOR [Concomitant]
     Indication: ANXIETY

REACTIONS (10)
  - MUSCLE SPASMS [None]
  - VOMITING [None]
  - INFLUENZA [None]
  - ROTATOR CUFF SYNDROME [None]
  - CROHN'S DISEASE [None]
  - DIARRHOEA [None]
  - ABDOMINAL PAIN UPPER [None]
  - PAIN [None]
  - FATIGUE [None]
  - MUSCULOSKELETAL PAIN [None]
